FAERS Safety Report 18276813 (Version 2)
Quarter: 2020Q3

REPORT INFORMATION
  Report Type: Report from Study
  Country: US (occurrence: US)
  Receive Date: 20200917
  Receipt Date: 20200928
  Transmission Date: 20201103
  Serious: No
  Sender: FDA-Public Use
  Company Number: US-DSJP-DSU-2020-126674

PATIENT
  Age: 43 Year
  Sex: Female

DRUGS (1)
  1. PEXIDARTINIB [Suspect]
     Active Substance: PEXIDARTINIB
     Indication: SYNOVITIS
     Dosage: 400 MG, BID
     Route: 048
     Dates: start: 20200903

REACTIONS (7)
  - Diarrhoea [Recovered/Resolved]
  - Fatigue [Not Recovered/Not Resolved]
  - Alanine aminotransferase decreased [Recovered/Resolved]
  - Nausea [Not Recovered/Not Resolved]
  - Incision site cellulitis [Recovered/Resolved]
  - Pigmentation disorder [Not Recovered/Not Resolved]
  - Aspartate aminotransferase decreased [Recovered/Resolved]

NARRATIVE: CASE EVENT DATE: 202009
